FAERS Safety Report 25850316 (Version 1)
Quarter: 2025Q3

REPORT INFORMATION
  Report Type: Spontaneous
  Country: IN (occurrence: IN)
  Receive Date: 20250926
  Receipt Date: 20250926
  Transmission Date: 20251020
  Serious: Yes (Death, Hospitalization, Other)
  Sender: EXELA PHARMA SCIENCES
  Company Number: IN-EXELAPHARMA-2025EXLA00195

PATIENT
  Age: 5 Year
  Sex: Female

DRUGS (2)
  1. ACETYLCYSTEINE [Suspect]
     Active Substance: ACETYLCYSTEINE
     Indication: Acute hepatic failure
     Route: 065
  2. ACETYLCYSTEINE [Suspect]
     Active Substance: ACETYLCYSTEINE
     Indication: Disease recurrence

REACTIONS (2)
  - Drug ineffective for unapproved indication [Fatal]
  - Condition aggravated [Fatal]
